FAERS Safety Report 9200532 (Version 2)
Quarter: 2013Q2

REPORT INFORMATION
  Report Type: Report from Study
  Country: US (occurrence: US)
  Receive Date: 20130329
  Receipt Date: 20130506
  Transmission Date: 20140414
  Serious: Yes (Hospitalization, Other)
  Sender: FDA-Public Use
  Company Number: US-ABBOTT-13P-163-1066449-00

PATIENT
  Age: 51 Year
  Sex: Male
  Weight: 98.06 kg

DRUGS (7)
  1. HUMIRA [Suspect]
     Indication: RHEUMATOID ARTHRITIS
     Dates: start: 201110, end: 20121222
  2. METFORMIN [Concomitant]
     Indication: DIABETES MELLITUS
  3. AMLODIPINE [Concomitant]
     Indication: PRODUCT USED FOR UNKNOWN INDICATION
  4. LYRICA [Concomitant]
     Indication: PRODUCT USED FOR UNKNOWN INDICATION
  5. TAMSULOSIN [Concomitant]
     Indication: PROSTATOMEGALY
  6. CLONIDINE [Concomitant]
     Indication: PRODUCT USED FOR UNKNOWN INDICATION
  7. GLIMEPIRIDE [Concomitant]
     Indication: PRODUCT USED FOR UNKNOWN INDICATION
     Dates: start: 201212, end: 2013

REACTIONS (11)
  - Arthralgia [Recovered/Resolved]
  - Back pain [Recovered/Resolved]
  - Staphylococcal infection [Recovering/Resolving]
  - Intervertebral disc degeneration [Unknown]
  - Mobility decreased [Unknown]
  - Hypoaesthesia [Not Recovered/Not Resolved]
  - Muscular weakness [Not Recovered/Not Resolved]
  - Incorrect storage of drug [Unknown]
  - Poor quality drug administered [Unknown]
  - Extradural abscess [Unknown]
  - Intervertebral discitis [Unknown]
